FAERS Safety Report 6234719-7 (Version None)
Quarter: 2009Q2

REPORT INFORMATION
  Report Type: 
  Country: None (occurrence: None)
  Receive Date: 20090616
  Receipt Date: 20090616
  Transmission Date: 20091009
  Serious: Yes (Life-Threatening)
  Sender: FDA-Public Use
  Company Number: None

PATIENT
  Age: 71 Year
  Sex: Male
  Weight: 95.2554 kg

DRUGS (2)
  1. CLINDAMYCIN HCL [Suspect]
     Indication: GINGIVAL INFECTION
     Dosage: 2    4 HOURS, 6 PER DAY PO
     Route: 048
     Dates: start: 20090611, end: 20090613
  2. CLINDAMYCIN HCL [Suspect]
     Indication: TOOTH INFECTION
     Dosage: 2    4 HOURS, 6 PER DAY PO
     Route: 048
     Dates: start: 20090611, end: 20090613

REACTIONS (3)
  - CHEST PAIN [None]
  - DYSPEPSIA [None]
  - HEART RATE INCREASED [None]
